FAERS Safety Report 5651267-3 (Version None)
Quarter: 2008Q1

REPORT INFORMATION
  Report Type: 
  Country: None (occurrence: None)
  Receive Date: 20080131
  Receipt Date: 20071130
  Transmission Date: 20080703
  Serious: No
  Sender: FDA-Public Use
  Company Number: US200710003237

PATIENT
  Age: 63 Year
  Sex: Male
  Weight: 104.3 kg

DRUGS (5)
  1. BYETTA [Suspect]
     Indication: TYPE 2 DIABETES MELLITUS
     Dosage: 5 UG, SUBCUTANEOUS ; 10 UG, SUBCUTANEOUS
     Route: 058
     Dates: start: 20051014, end: 20051118
  2. BYETTA [Suspect]
     Indication: TYPE 2 DIABETES MELLITUS
     Dosage: 5 UG, SUBCUTANEOUS ; 10 UG, SUBCUTANEOUS
     Route: 058
     Dates: start: 20051118, end: 20071102
  3. HYDROCHLOROTHIAZIDE [Concomitant]
  4. HUMULIN N [Concomitant]
  5. ANTIOBIOTICS [Concomitant]

REACTIONS (6)
  - DIARRHOEA [None]
  - FLATULENCE [None]
  - NAUSEA [None]
  - RENAL FUNCTION TEST ABNORMAL [None]
  - VOMITING [None]
  - WEIGHT DECREASED [None]
